FAERS Safety Report 18246669 (Version 1)
Quarter: 2020Q3

REPORT INFORMATION
  Report Type: Spontaneous
  Country: US (occurrence: US)
  Receive Date: 20200429
  Receipt Date: 20200429
  Transmission Date: 20201103
  Serious: No
  Sender: FDA-Public Use
  Company Number: None

PATIENT
  Sex: Female

DRUGS (3)
  1. OSELTAMIVIR [Suspect]
     Active Substance: OSELTAMIVIR
     Indication: COVID-19
     Dates: start: 2020
  2. ARBIDOL [Suspect]
     Active Substance: UMIFENOVIR
  3. LOPINAVIR?RITONAVIR [Suspect]
     Active Substance: LOPINAVIR\RITONAVIR

REACTIONS (3)
  - Respiratory disorder [None]
  - Viral load increased [None]
  - Culture positive [None]

NARRATIVE: CASE EVENT DATE: 20200117
